FAERS Safety Report 10233287 (Version 1)
Quarter: 2014Q2

REPORT INFORMATION
  Report Type: Spontaneous
  Country: US (occurrence: US)
  Receive Date: 20140612
  Receipt Date: 20140612
  Transmission Date: 20141212
  Serious: No
  Sender: FDA-Public Use
  Company Number: US-PFIZER INC-2014160718

PATIENT
  Age: 57 Year
  Sex: Female
  Weight: 81.63 kg

DRUGS (13)
  1. PRISTIQ [Suspect]
     Indication: DEPRESSION
     Dosage: 100 MG, UNK
     Route: 048
     Dates: start: 2010
  2. TEGRETOL [Concomitant]
     Dosage: UNK
  3. KLONOPIN [Concomitant]
     Dosage: UNK
  4. LEVOTHYROXINE [Concomitant]
     Dosage: UNK
  5. LIDOCAINE [Concomitant]
     Dosage: UNK
  6. LIDOCAINE [Concomitant]
     Dosage: UNK
  7. ZOFRAN [Concomitant]
     Dosage: UNK
  8. OXYCODONE [Concomitant]
     Dosage: UNK
  9. BENZTROPINE MESILATE [Concomitant]
     Dosage: UNK
  10. VICOPROFEN [Concomitant]
     Indication: DYSTONIA
     Dosage: UNK
  11. IBUPROFEN [Concomitant]
     Indication: PAIN
     Dosage: UNK, AS NEEDED
  12. TYLENOL [Concomitant]
     Dosage: UNK
  13. BOTOX [Concomitant]
     Indication: DYSTONIA
     Dosage: UNK

REACTIONS (1)
  - Drug ineffective [Unknown]
